FAERS Safety Report 12718314 (Version 2)
Quarter: 2016Q3

REPORT INFORMATION
  Report Type: Spontaneous
  Country: IT (occurrence: IT)
  Receive Date: 20160906
  Receipt Date: 20160909
  Transmission Date: 20161109
  Serious: Yes (Hospitalization, Other)
  Sender: FDA-Public Use
  Company Number: PHHY2016IT119671

PATIENT
  Age: 58 Year
  Sex: Female

DRUGS (2)
  1. LORAZEPAM. [Suspect]
     Active Substance: LORAZEPAM
     Indication: DRUG ABUSE
     Dosage: ONCE/SINGLE
     Route: 048
     Dates: start: 20160613, end: 20160613
  2. ACETAMINOPHEN AND CODEINE [Suspect]
     Active Substance: ACETAMINOPHEN\CODEINE PHOSPHATE
     Indication: DRUG ABUSE
     Dosage: UNK, ONCE/SINGLE
     Route: 048
     Dates: start: 20160613, end: 20160613

REACTIONS (8)
  - Intentional self-injury [Recovering/Resolving]
  - Mobility decreased [Unknown]
  - Injury [Unknown]
  - Sopor [Recovering/Resolving]
  - Alanine aminotransferase increased [Recovering/Resolving]
  - Drug abuse [Unknown]
  - Confusional state [Recovering/Resolving]
  - Blood creatine phosphokinase increased [Recovering/Resolving]

NARRATIVE: CASE EVENT DATE: 20160613
